FAERS Safety Report 5408781-5 (Version None)
Quarter: 2007Q3

REPORT INFORMATION
  Report Type: 
  Country: None (occurrence: None)
  Receive Date: 20070808
  Receipt Date: 20070726
  Transmission Date: 20080115
  Serious: No
  Sender: FDA-Public Use
  Company Number: US-ELI_LILLY_AND_COMPANY-US200707006257

PATIENT
  Sex: Female

DRUGS (3)
  1. CYMBALTA [Suspect]
     Indication: POSTPARTUM DEPRESSION
     Dosage: 60 MG, UNK
     Route: 048
     Dates: start: 20070501
  2. ORAL CONTRACEPTIVE NOS [Concomitant]
  3. OXAZEPAM [Concomitant]

REACTIONS (4)
  - ALANINE AMINOTRANSFERASE INCREASED [None]
  - BLOOD PRESSURE INCREASED [None]
  - HYPERHIDROSIS [None]
  - SALIVARY GLAND DISORDER [None]
